FAERS Safety Report 15036540 (Version 1)
Quarter: 2018Q2

REPORT INFORMATION
  Report Type: Spontaneous
  Country: FR (occurrence: FR)
  Receive Date: 20180620
  Receipt Date: 20180620
  Transmission Date: 20180711
  Serious: Yes (Hospitalization)
  Sender: FDA-Public Use
  Company Number: FR-PFIZER INC-2018242939

PATIENT
  Age: 55 Year
  Sex: Female

DRUGS (5)
  1. KETOPROFENE BIOGARAN [Suspect]
     Active Substance: KETOPROFEN
     Indication: TENDONITIS
     Dosage: 1 DF, 1X/DAY
     Route: 048
     Dates: start: 20180328, end: 20180411
  2. FLECTOR [Suspect]
     Active Substance: DICLOFENAC EPOLAMINE
     Indication: TENDONITIS
     Dosage: 2 DF, 1X/DAY (2 APPLICATIONS PER DAY)
     Route: 003
     Dates: start: 20180320, end: 20180411
  3. ESOMEPRAZOLE BIOGARAN [Suspect]
     Active Substance: ESOMEPRAZOLE
     Indication: PROPHYLAXIS AGAINST GASTROINTESTINAL ULCER
     Dosage: 1 DF, 1X/DAY
     Route: 048
     Dates: start: 20180328, end: 20180411
  4. TARDYFERON [Concomitant]
     Active Substance: FERROUS SULFATE
  5. TROSPIPHARM [Concomitant]
     Dosage: UNK

REACTIONS (1)
  - Angioedema [Recovered/Resolved]

NARRATIVE: CASE EVENT DATE: 20180411
